FAERS Safety Report 9440079 (Version 1)
Quarter: 2013Q3

REPORT INFORMATION
  Report Type: Spontaneous
  Country: GB (occurrence: GB)
  Receive Date: 20130805
  Receipt Date: 20130805
  Transmission Date: 20140515
  Serious: Yes (Disabling, Other)
  Sender: FDA-Public Use
  Company Number: GB-MYLANLABS-2013S1016318

PATIENT
  Age: 11 Month
  Sex: Female
  Weight: 8.7 kg

DRUGS (1)
  1. PAROXETINE [Suspect]
     Route: 064

REACTIONS (4)
  - Exposure during pregnancy [Unknown]
  - Developmental delay [Unknown]
  - Speech disorder developmental [Unknown]
  - Hypotonia [Unknown]
